FAERS Safety Report 19074902 (Version 1)
Quarter: 2021Q1

REPORT INFORMATION
  Report Type: Other
  Country: US (occurrence: US)
  Receive Date: 20210330
  Receipt Date: 20210330
  Transmission Date: 20210420
  Serious: Yes (Other)
  Sender: FDA-Public Use
  Company Number: US-ROCHE-2634522

PATIENT
  Sex: Female

DRUGS (2)
  1. 5?FLUOROURACIL [Concomitant]
     Active Substance: FLUOROURACIL
  2. VISMODEGIB. [Suspect]
     Active Substance: VISMODEGIB
     Indication: BASAL CELL CARCINOMA
     Route: 065

REACTIONS (4)
  - Muscle spasms [Unknown]
  - Ageusia [Unknown]
  - Weight decreased [Unknown]
  - Alopecia [Unknown]
